FAERS Safety Report 15053133 (Version 1)
Quarter: 2018Q2

REPORT INFORMATION
  Report Type: Spontaneous
  Country: US (occurrence: US)
  Receive Date: 20180602
  Receipt Date: 20180602
  Transmission Date: 20180711
  Serious: No
  Sender: FDA-Public Use
  Company Number: None

PATIENT
  Age: 75 Year
  Sex: Male

DRUGS (2)
  1. BEXAROTENE. [Suspect]
     Active Substance: BEXAROTENE
     Indication: PRODUCT USED FOR UNKNOWN INDICATION
     Dates: start: 20140318, end: 20180602
  2. BEXAROTENE. [Suspect]
     Active Substance: BEXAROTENE
     Indication: MYCOSIS FUNGOIDES
     Dates: start: 20140318, end: 20180602

REACTIONS (2)
  - Product use complaint [None]
  - Cerebrovascular accident [None]

NARRATIVE: CASE EVENT DATE: 20180601
